FAERS Safety Report 7495965-8 (Version None)
Quarter: 2011Q2

REPORT INFORMATION
  Report Type: 
  Country: None (occurrence: None)
  Receive Date: 20110523
  Receipt Date: 20110510
  Transmission Date: 20111010
  Serious: Yes (Hospitalization, Other)
  Sender: FDA-Public Use
  Company Number: FR-PFIZER INC-2011109186

PATIENT
  Age: 55 Year
  Sex: Female

DRUGS (6)
  1. ATARAX [Suspect]
     Dosage: 12.5 MG, 4X/DAY
     Route: 048
     Dates: end: 20110321
  2. MIRTAZAPINE [Suspect]
     Dosage: 15 MG, 3X/DAY
     Route: 048
     Dates: end: 20110321
  3. MOVIPREP [Suspect]
     Dosage: 1 DF, 2X/DAY
     Route: 048
     Dates: end: 20110317
  4. CLOZAPINE [Suspect]
     Dosage: 100 MG, 4X/DAY
     Route: 048
     Dates: end: 20110414
  5. TERCIAN [Suspect]
     Dosage: 10 DROPS (40 MG/ML SOLUTION)
     Route: 048
     Dates: end: 20110321
  6. ACETAMINOPHEN AND TRAMADOL HCL [Suspect]
     Dosage: 1 DF, 3X/DAY
     Route: 048
     Dates: end: 20110317

REACTIONS (11)
  - ANAEMIA [None]
  - DIABETIC HYPEROSMOLAR COMA [None]
  - HYPERGLYCAEMIA [None]
  - HYPERNATRAEMIA [None]
  - DIABETES INSIPIDUS [None]
  - PYELONEPHRITIS [None]
  - ALTERED STATE OF CONSCIOUSNESS [None]
  - ABNORMAL BEHAVIOUR [None]
  - DYSPNOEA [None]
  - RENAL FAILURE ACUTE [None]
  - MYOCLONUS [None]
